FAERS Safety Report 9837386 (Version 1)
Quarter: 2014Q1

REPORT INFORMATION
  Report Type: Spontaneous
  Country: US (occurrence: US)
  Receive Date: 20140123
  Receipt Date: 20140123
  Transmission Date: 20141002
  Serious: No
  Sender: FDA-Public Use
  Company Number: US-PFIZER INC-2014017181

PATIENT
  Sex: Male

DRUGS (2)
  1. VIAGRA [Suspect]
     Indication: ERECTILE DYSFUNCTION
     Dosage: 100 MG, UNK
     Route: 048
  2. VIAGRA [Suspect]
     Dosage: 150 MG (BY TAKING ONE TABLET OF 100MG AND HALF TABLET OF 100MG TO TAKE 50MG), UNK
     Route: 048

REACTIONS (3)
  - Drug effect decreased [Unknown]
  - Drug ineffective [Unknown]
  - Incorrect dose administered [Unknown]
